FAERS Safety Report 22858993 (Version 2)
Quarter: 2024Q2

REPORT INFORMATION
  Report Type: Spontaneous
  Country: CA (occurrence: CA)
  Receive Date: 20230824
  Receipt Date: 20240501
  Transmission Date: 20240716
  Serious: Yes (Other)
  Sender: FDA-Public Use
  Company Number: CA-AUROBINDO-AUR-APL-2023-054072

PATIENT
  Sex: Female

DRUGS (4)
  1. EZETIMIBE [Suspect]
     Active Substance: EZETIMIBE
     Indication: Arteriosclerosis
     Dosage: 10 MILLIGRAM, ONCE A DAY
     Route: 058
  2. ROSUVASTATIN [Suspect]
     Active Substance: ROSUVASTATIN
     Indication: Arteriosclerosis
     Dosage: 5 MILLIGRAM (EVERY 2 WEEKS)
     Route: 058
  3. ROSUVASTATIN [Suspect]
     Active Substance: ROSUVASTATIN
     Dosage: 2.5 MILLIGRAM, EVERY WEEK
     Route: 058
  4. LEQVIO [Suspect]
     Active Substance: INCLISIRAN SODIUM
     Indication: Arteriosclerosis
     Dosage: UNK
     Route: 058

REACTIONS (7)
  - Dyslipidaemia [Unknown]
  - Coronary artery disease [Unknown]
  - Drug-induced liver injury [Unknown]
  - Hepatic enzyme increased [Unknown]
  - Hypertransaminasaemia [Unknown]
  - Non-alcoholic fatty liver [Unknown]
  - Treatment failure [Unknown]
